FAERS Safety Report 13290558 (Version 1)
Quarter: 2017Q1

REPORT INFORMATION
  Report Type: Spontaneous
  Country: CA (occurrence: CA)
  Receive Date: 20170302
  Receipt Date: 20170302
  Transmission Date: 20170428
  Serious: Yes (Disabling)
  Sender: FDA-Public Use
  Company Number: CA-TEVA-744491ACC

PATIENT
  Age: 66 Year
  Sex: Female

DRUGS (4)
  1. TEVA-ROSUVASTATIN [Suspect]
     Active Substance: ROSUVASTATIN
     Indication: HYPERCHOLESTEROLAEMIA
     Dosage: 10 MILLIGRAM DAILY;
     Route: 048
  2. TEVA-SUMATRIPTAN [Concomitant]
  3. RABEPRAZOLE [Concomitant]
     Active Substance: RABEPRAZOLE
  4. CO ROSUVASTATIN [Suspect]
     Active Substance: ROSUVASTATIN
     Indication: HYPERCHOLESTEROLAEMIA
     Dosage: 10 MILLIGRAM DAILY;
     Route: 048

REACTIONS (5)
  - Hypoaesthesia [Recovering/Resolving]
  - Sleep disorder due to general medical condition, insomnia type [Recovering/Resolving]
  - Burning sensation [Recovering/Resolving]
  - Neuropathy peripheral [Recovering/Resolving]
  - Feeling hot [Recovering/Resolving]
